FAERS Safety Report 7702642-4 (Version None)
Quarter: 2011Q3

REPORT INFORMATION
  Report Type: 
  Country: None (occurrence: None)
  Receive Date: 20110823
  Receipt Date: 20110818
  Transmission Date: 20111222
  Serious: Yes (Hospitalization, Other)
  Sender: FDA-Public Use
  Company Number: DE-SHIRE-SPV1-2011-01049

PATIENT
  Sex: Female
  Weight: 62 kg

DRUGS (3)
  1. VPRIV [Suspect]
     Indication: GAUCHER'S DISEASE
     Dosage: UNK, UNKNOWN
     Route: 041
     Dates: start: 20100401
  2. RAMIPRIL PLUS [Concomitant]
     Indication: PRODUCT USED FOR UNKNOWN INDICATION
     Dosage: 1 DF, 1X/DAY:QD
     Dates: start: 20100401
  3. TRAMAL LONG [Concomitant]
     Indication: PRODUCT USED FOR UNKNOWN INDICATION
     Dosage: 150 UNK, 2X/DAY:BID
     Route: 065
     Dates: start: 20110101

REACTIONS (1)
  - HEPATIC NEOPLASM MALIGNANT [None]
